FAERS Safety Report 23488057 (Version 1)
Quarter: 2024Q1

REPORT INFORMATION
  Report Type: Spontaneous
  Country: US (occurrence: US)
  Receive Date: 20240206
  Receipt Date: 20240206
  Transmission Date: 20240410
  Serious: No
  Sender: FDA-Public Use
  Company Number: US-002147023-NVSC2024US025819

PATIENT
  Sex: Female

DRUGS (1)
  1. PROMACTA [Suspect]
     Active Substance: ELTROMBOPAG OLAMINE
     Indication: Thrombocytopenia
     Dosage: 50 MG, QD BY MOUTH
     Route: 050
     Dates: start: 202304

REACTIONS (3)
  - Weight decreased [Unknown]
  - Taste disorder [Unknown]
  - Gastrooesophageal reflux disease [Unknown]
